FAERS Safety Report 16114956 (Version 2)
Quarter: 2019Q3

REPORT INFORMATION
  Report Type: Report from Study
  Country: PT (occurrence: PT)
  Receive Date: 20190325
  Receipt Date: 20190823
  Transmission Date: 20191004
  Serious: Yes (Hospitalization)
  Sender: FDA-Public Use
  Company Number: PT-SA-2019SA078593

PATIENT
  Age: 60 Year
  Sex: Female

DRUGS (8)
  1. DOCETAXEL. [Suspect]
     Active Substance: DOCETAXEL
     Indication: BREAST CANCER METASTATIC
     Dosage: 75 UG/M2, Q3W
     Route: 042
     Dates: start: 20170120
  2. TRASTUZUMAB. [Suspect]
     Active Substance: TRASTUZUMAB
     Indication: BREAST CANCER METASTATIC
     Dosage: 6 UG/KG, Q3W
     Route: 042
     Dates: start: 20170120
  3. PIPERACILLIN. [Concomitant]
     Active Substance: PIPERACILLIN SODIUM
     Indication: LARGE INTESTINE INFECTION
     Dosage: ONGOING = NOT CHECKED
     Route: 065
  4. OMEPRAZOL [OMEPRAZOLE] [Concomitant]
     Active Substance: OMEPRAZOLE
     Route: 065
     Dates: start: 20170615
  5. PERTUZUMAB. [Suspect]
     Active Substance: PERTUZUMAB
     Indication: BREAST CANCER METASTATIC
     Dosage: 420 UG, Q3W
     Route: 042
     Dates: start: 20170213, end: 20170323
  6. OLANZAPINA [Concomitant]
     Active Substance: OLANZAPINE
     Dosage: UNK
     Route: 065
     Dates: start: 20170615
  7. TAZOBACTAM [Concomitant]
     Active Substance: TAZOBACTAM
     Indication: LARGE INTESTINE INFECTION
     Dosage: ONGOING = NOT CHECKED
     Route: 065
  8. TRASTUZUMAB EMTANSINE [Suspect]
     Active Substance: ADO-TRASTUZUMAB EMTANSINE
     Indication: BREAST CANCER METASTATIC
     Dosage: UNK, Q3W
     Route: 042
     Dates: start: 20170731

REACTIONS (6)
  - Ejection fraction decreased [Recovered/Resolved]
  - Large intestine infection [Recovered/Resolved]
  - General physical health deterioration [Recovered/Resolved]
  - Colitis [Recovered/Resolved]
  - Ejection fraction decreased [Recovered/Resolved]
  - Diarrhoea [Recovering/Resolving]

NARRATIVE: CASE EVENT DATE: 20170413
